FAERS Safety Report 4476424-3 (Version None)
Quarter: 2004Q4

REPORT INFORMATION
  Report Type: 
  Country: None (occurrence: None)
  Receive Date: 20041016
  Receipt Date: 20041011
  Transmission Date: 20050328
  Serious: Yes (Life-Threatening, Hospitalization)
  Sender: FDA-Public Use
  Company Number: US-MERCK-0410USA01680

PATIENT
  Age: 52 Year
  Sex: Female

DRUGS (8)
  1. LIPITOR [Concomitant]
     Route: 065
  2. LEXAPRO [Concomitant]
     Route: 065
  3. PREMARIN [Concomitant]
     Route: 065
  4. PREVACID [Concomitant]
     Route: 065
  5. INDERAL [Concomitant]
     Route: 065
  6. VIOXX [Suspect]
     Indication: HEADACHE
     Route: 048
  7. IMITREX [Concomitant]
     Route: 065
  8. TOPAMAX [Concomitant]
     Route: 065

REACTIONS (1)
  - MYOCARDIAL INFARCTION [None]
